FAERS Safety Report 25863644 (Version 1)
Quarter: 2025Q3

REPORT INFORMATION
  Report Type: Spontaneous
  Country: US (occurrence: None)
  Receive Date: 20250929
  Receipt Date: 20250929
  Transmission Date: 20251021
  Serious: Yes (Hospitalization)
  Sender: FDA-CTU
  Company Number: None

PATIENT
  Age: 71 Year
  Sex: Female
  Weight: 66.15 kg

DRUGS (11)
  1. APIXABAN [Suspect]
     Active Substance: APIXABAN
     Indication: Atrial fibrillation
     Dosage: OTHER QUANTITY : 1 TABLET(S);?FREQUENCY : TWICE A DAY;?
     Route: 048
     Dates: start: 20250801, end: 20250927
  2. DEVICE [Concomitant]
     Active Substance: DEVICE
  3. OMEPRAZOLE [Concomitant]
     Active Substance: OMEPRAZOLE
  4. TEMAZAPAN [Concomitant]
  5. VITAMIN B12 [Concomitant]
     Active Substance: CYANOCOBALAMIN
  6. VITAMIN K [Concomitant]
     Active Substance: PHYTONADIONE
  7. VITAMIN D NOS [Concomitant]
     Active Substance: CHOLECALCIFEROL\ERGOCALCIFEROL
  8. ZINC [Concomitant]
     Active Substance: ZINC
  9. SELENIUM [Concomitant]
     Active Substance: SELENIUM
  10. TURKEY TAIL MUSHROOMS [Concomitant]
  11. MAGNESIUM [Concomitant]
     Active Substance: MAGNESIUM

REACTIONS (13)
  - Illness [None]
  - Arthralgia [None]
  - Vomiting [None]
  - Diarrhoea [None]
  - Pyrexia [None]
  - Asthenia [None]
  - Myocardial necrosis marker increased [None]
  - Hepatic enzyme abnormal [None]
  - Renal disorder [None]
  - Troponin increased [None]
  - C-reactive protein increased [None]
  - Blood alkaline phosphatase increased [None]
  - Hypophagia [None]

NARRATIVE: CASE EVENT DATE: 20250925
